FAERS Safety Report 10225196 (Version 1)
Quarter: 2014Q2

REPORT INFORMATION
  Report Type: Spontaneous
  Country: JP (occurrence: JP)
  Receive Date: 20140609
  Receipt Date: 20140609
  Transmission Date: 20141212
  Serious: Yes (Other)
  Sender: FDA-Public Use
  Company Number: JP-MUNDIPHARMA DS AND PHARMACOVIGILANCE-GBR-2014-0018677

PATIENT
  Age: 60 Year
  Sex: Female

DRUGS (9)
  1. OXYCODONE HCL PR TABLET [Suspect]
     Indication: CANCER PAIN
     Dosage: 20 MG, DAILY
     Route: 048
     Dates: start: 20140226, end: 20140522
  2. OXYCODONE HCL IR POWDER 0.5% [Suspect]
     Indication: CANCER PAIN
     Dosage: 10 MG, DAILY
     Route: 048
     Dates: end: 20140522
  3. FENTOS [Concomitant]
     Indication: CANCER PAIN
     Dosage: 4 MG, DAILY
     Dates: start: 20140226
  4. FENTOS [Concomitant]
     Dosage: 8 MG, DAILY
  5. TRAMAL [Concomitant]
     Indication: CANCER PAIN
     Dosage: 200 MG, DAILY
     Route: 048
     Dates: end: 20140226
  6. LOXONIN [Concomitant]
     Indication: CANCER PAIN
     Dosage: 4 DF, DAILY
     Route: 065
  7. ZYPREXA [Concomitant]
     Indication: AFFECTIVE DISORDER
     Route: 065
  8. PRIMPERAN [Concomitant]
     Indication: NAUSEA
     Route: 065
  9. LYRICA [Concomitant]
     Dosage: 300 MG, DAILY
     Dates: start: 20140331, end: 20140522

REACTIONS (1)
  - Condition aggravated [Unknown]
